FAERS Safety Report 5675366-5 (Version None)
Quarter: 2008Q1

REPORT INFORMATION
  Report Type: 
  Country: None (occurrence: None)
  Receive Date: 20080320
  Receipt Date: 20080318
  Transmission Date: 20080703
  Serious: Yes (Hospitalization, Other)
  Sender: FDA-Public Use
  Company Number: ES-BOEHRINGER INGELHEIM GMBH, GERMANY-2008-ES-00306ES

PATIENT
  Age: 77 Year
  Sex: Female

DRUGS (4)
  1. MICARDIS HCT [Suspect]
     Dosage: TELMISARTAN 40MG + 12,5 HCT
     Route: 048
     Dates: start: 20070101, end: 20080201
  2. AUGMENTIN '125' [Suspect]
     Dosage: CLAVULANIC 500MG + AMOXICILLIN 125MG
     Route: 048
     Dates: start: 20080201, end: 20080201
  3. PLAVIX [Suspect]
     Route: 048
     Dates: start: 20070101, end: 20080201
  4. PARACETAMOL [Suspect]
     Dates: start: 20070101, end: 20080201

REACTIONS (1)
  - HEPATITIS CHOLESTATIC [None]
